FAERS Safety Report 6557156-4 (Version None)
Quarter: 2010Q1

REPORT INFORMATION
  Report Type: 
  Country: None (occurrence: None)
  Receive Date: 20100127
  Receipt Date: 20100127
  Transmission Date: 20100710
  Serious: No
  Sender: FDA-Public Use
  Company Number: None

PATIENT
  Age: 46 Year
  Sex: Female
  Weight: 57.1532 kg

DRUGS (1)
  1. ZICAM 15ML ZICAM, INC. [Suspect]
     Indication: NASOPHARYNGITIS
     Dosage: ONCE
     Dates: start: 20091204, end: 20091204

REACTIONS (2)
  - AGEUSIA [None]
  - ANOSMIA [None]
